FAERS Safety Report 7234093-3 (Version None)
Quarter: 2011Q1

REPORT INFORMATION
  Report Type: 
  Country: None (occurrence: None)
  Receive Date: 20110113
  Receipt Date: 20110113
  Transmission Date: 20110831
  Serious: No
  Sender: FDA-Public Use
  Company Number: None

PATIENT
  Sex: Female
  Weight: 158.759 kg

DRUGS (1)
  1. MULTIHANCE [Suspect]
     Indication: RENAL CANCER
     Dosage: 10ML
     Dates: start: 20110112

REACTIONS (1)
  - URTICARIA [None]
